FAERS Safety Report 4461258-6 (Version None)
Quarter: 2004Q3

REPORT INFORMATION
  Report Type: 
  Country: None (occurrence: None)
  Receive Date: 20040928
  Receipt Date: 20031006
  Transmission Date: 20050211
  Serious: Yes (Hospitalization)
  Sender: FDA-Public Use
  Company Number: US-ABBOTT-03P-163-0236342-00

PATIENT
  Sex: Female
  Weight: 88.53 kg

DRUGS (5)
  1. HUMIRA [Suspect]
     Indication: RELAPSING POLYCHONDRITIS
     Route: 058
     Dates: start: 20030501, end: 20030801
  2. HUMIRA [Suspect]
     Route: 058
     Dates: start: 20030801, end: 20031001
  3. PREDNISONE [Concomitant]
     Indication: RELAPSING POLYCHONDRITIS
  4. AMITRIPTYLINE HYDROCHLORIDE [Concomitant]
     Indication: RELAPSING POLYCHONDRITIS
  5. IBUPROFEN [Concomitant]
     Indication: RELAPSING POLYCHONDRITIS

REACTIONS (7)
  - DYSPHAGIA [None]
  - OROPHARYNGEAL SWELLING [None]
  - SWELLING [None]
  - SWOLLEN TONGUE [None]
  - VOMITING [None]
  - WEIGHT DECREASED [None]
  - WEIGHT INCREASED [None]
